FAERS Safety Report 19157947 (Version 1)
Quarter: 2021Q2

REPORT INFORMATION
  Report Type: Other
  Country: ES (occurrence: ES)
  Receive Date: 20210420
  Receipt Date: 20210420
  Transmission Date: 20210717
  Serious: Yes (Other)
  Sender: FDA-Public Use
  Company Number: ES-ROCHE-2808248

PATIENT

DRUGS (2)
  1. TOCILIZUMAB. [Suspect]
     Active Substance: TOCILIZUMAB
     Indication: COVID-19
     Route: 065
  2. CEFTRIAXONE. [Suspect]
     Active Substance: CEFTRIAXONE
     Indication: COVID-19
     Route: 065

REACTIONS (9)
  - Pancreatitis [Unknown]
  - Aplastic anaemia [Unknown]
  - Agranulocytosis [Unknown]
  - Hepatitis [Unknown]
  - Off label use [Unknown]
  - Anaemia [Unknown]
  - Hypofibrinogenaemia [Unknown]
  - Rhabdomyolysis [Unknown]
  - Eosinophilia [Unknown]
